FAERS Safety Report 19317479 (Version 2)
Quarter: 2021Q2

REPORT INFORMATION
  Report Type: Report from Study
  Country: FR (occurrence: FR)
  Receive Date: 20210527
  Receipt Date: 20210607
  Transmission Date: 20210717
  Serious: Yes (Other)
  Sender: FDA-Public Use
  Company Number: FR-B.I. PHARMACEUTICALS,INC./RIDGEFIELD-2021-BI-105301

PATIENT

DRUGS (2)
  1. PERSANTIN AMPOULE [Suspect]
     Active Substance: DIPYRIDAMOLE
     Indication: VASODILATATION
     Dosage: 0.84 MG/KG OVER 3 MIN
  2. DOTAREM [Concomitant]
     Active Substance: GADOTERATE MEGLUMINE
     Indication: PRODUCT USED FOR UNKNOWN INDICATION
     Dosage: A BOLUS OF GADOLINIUM?BASED CONTRAST AGENT (0.1 MMOL/?KG, DOTAREM) WAS INJECTED AT A RATE OF?5.0 ML/

REACTIONS (1)
  - Angina unstable [Unknown]
